FAERS Safety Report 6992264-5 (Version None)
Quarter: 2010Q3

REPORT INFORMATION
  Report Type: 
  Country: None (occurrence: None)
  Receive Date: 20100917
  Receipt Date: 20100909
  Transmission Date: 20110219
  Serious: Yes (Death, Hospitalization)
  Sender: FDA-Public Use
  Company Number: JP-SANOFI-AVENTIS-2010SA047346

PATIENT
  Age: 74 Year
  Sex: Male
  Weight: 45.3 kg

DRUGS (6)
  1. TAXOTERE [Suspect]
     Dosage: DAY 1/WEEK
     Route: 041
     Dates: start: 20100104, end: 20100118
  2. RANDA [Suspect]
     Dosage: DAY 1-5/WEEK
     Route: 041
     Dates: start: 20100104, end: 20100122
  3. FLUOROURACIL [Suspect]
     Dosage: DAY 1-5/WEEK
     Route: 041
     Dates: start: 20100104, end: 20100122
  4. DECADRON [Concomitant]
     Indication: OESOPHAGEAL CARCINOMA
     Dosage: DAY 1/WEEK
     Route: 041
     Dates: start: 20100104, end: 20100118
  5. FAMOTIDINE [Concomitant]
     Indication: OESOPHAGEAL CARCINOMA
     Dosage: DAY 1-5/WEEK
     Route: 041
     Dates: start: 20100104, end: 20100118
  6. SEROTONE [Concomitant]
     Indication: OESOPHAGEAL CARCINOMA
     Dosage: DAY 1-5/WEEK
     Route: 041
     Dates: start: 20100104, end: 20100118

REACTIONS (4)
  - DECREASED APPETITE [None]
  - DIARRHOEA [None]
  - FEBRILE NEUTROPENIA [None]
  - RESPIRATORY FAILURE [None]
